FAERS Safety Report 8835342 (Version 2)
Quarter: 2015Q3

REPORT INFORMATION
  Report Type: Report from Study
  Country: US (occurrence: US)
  Receive Date: 20121011
  Receipt Date: 20150805
  Transmission Date: 20151125
  Serious: Yes (Hospitalization)
  Sender: FDA-Public Use
  Company Number: US-ROCHE-1112261

PATIENT
  Sex: Male

DRUGS (3)
  1. NUTROPIN [Suspect]
     Active Substance: SOMATROPIN
     Indication: HYPOPITUITARISM
  2. NUTROPIN [Suspect]
     Active Substance: SOMATROPIN
     Indication: HYPOTHALAMO-PITUITARY DISORDER
     Route: 058
  3. NUTROPIN [Suspect]
     Active Substance: SOMATROPIN
     Indication: HYPOTHALAMO-PITUITARY DISORDER
     Route: 058

REACTIONS (4)
  - Malaise [Unknown]
  - Device related infection [Unknown]
  - Irritability [Unknown]
  - Vomiting [Unknown]
